FAERS Safety Report 9772350 (Version 1)
Quarter: 2013Q4

REPORT INFORMATION
  Report Type: Spontaneous
  Country: US (occurrence: None)
  Receive Date: 20131217
  Receipt Date: 20131217
  Transmission Date: 20140711
  Serious: Yes (Death)
  Sender: FDA-Public Use
  Company Number: UTC-041593

PATIENT
  Age: 55 Year
  Sex: Female
  Weight: 50 kg

DRUGS (1)
  1. REMODULIN (1 MILLIGRAM/MILLILITERS INJECTION FOR INFUSION) (TREPROSTINIL SODIUM) [Suspect]
     Indication: COR PULMONALE CHRONIC
     Dosage: 23.04 UG/KG (0.016 UG/KG, 1 IN 1 MIN), INTRAVENOUS DRIP
     Dates: start: 20130801

REACTIONS (1)
  - Death [None]
